FAERS Safety Report 9685241 (Version 1)
Quarter: 2013Q4

REPORT INFORMATION
  Report Type: Spontaneous
  Country: US (occurrence: US)
  Receive Date: 20131113
  Receipt Date: 20131113
  Transmission Date: 20140711
  Serious: Yes (Other)
  Sender: FDA-Public Use
  Company Number: US-AMGEN-USASP2013078385

PATIENT
  Sex: Female

DRUGS (8)
  1. NEUPOGEN [Suspect]
     Indication: PRODUCT USED FOR UNKNOWN INDICATION
     Dosage: 300 MUG, DAILY
     Route: 065
     Dates: start: 20131014
  2. NEULASTA [Suspect]
     Indication: PRODUCT USED FOR UNKNOWN INDICATION
     Dosage: 6 MG, UNK
     Route: 065
     Dates: start: 20131022
  3. GEMCITABINE [Concomitant]
     Indication: METASTASES TO BONE
     Dosage: 1250 MG/M2, UNK (2000MG)
     Dates: start: 20131011
  4. GEMCITABINE [Concomitant]
     Indication: METASTASES TO LUNG
  5. GEMCITABINE [Concomitant]
     Indication: HEPATIC CANCER
  6. CISPLATIN [Concomitant]
     Indication: METASTASES TO BONE
     Dosage: 100 MG/M2, UNK (160MG)
     Dates: start: 20131011
  7. CISPLATIN [Concomitant]
     Indication: METASTASES TO LUNG
  8. CISPLATIN [Concomitant]
     Indication: HEPATIC CANCER

REACTIONS (5)
  - Hilar lymphadenopathy [Unknown]
  - Lymphadenopathy [Unknown]
  - Pleural effusion [Unknown]
  - White blood cell count abnormal [Unknown]
  - Malaise [Unknown]
